FAERS Safety Report 25011771 (Version 2)
Quarter: 2025Q1

REPORT INFORMATION
  Report Type: Spontaneous
  Country: JP (occurrence: JP)
  Receive Date: 20250226
  Receipt Date: 20250313
  Transmission Date: 20250409
  Serious: No
  Sender: AMGEN
  Company Number: JP-AMGEN-JPNSP2025035103

PATIENT
  Weight: 62 kg

DRUGS (2)
  1. TEPEZZA [Suspect]
     Active Substance: TEPROTUMUMAB-TRBW
     Indication: Endocrine ophthalmopathy
     Dosage: 10 MILLIGRAM/KILOGRAM, Q3WK (FIRST DOSE) (INTRAVENOUS DRIP INFUSION)
     Route: 040
     Dates: start: 20250218
  2. POLARAMINE [Concomitant]
     Active Substance: DEXCHLORPHENIRAMINE MALEATE
     Dosage: UNK UNK, Q3WK
     Route: 065
     Dates: start: 20250218, end: 20250218

REACTIONS (1)
  - Intraocular pressure increased [Not Recovered/Not Resolved]

NARRATIVE: CASE EVENT DATE: 20250219
